FAERS Safety Report 24178875 (Version 1)
Quarter: 2024Q3

REPORT INFORMATION
  Report Type: Spontaneous
  Country: US (occurrence: US)
  Receive Date: 20240806
  Receipt Date: 20240806
  Transmission Date: 20241017
  Serious: No
  Sender: BAUSCH AND LOMB
  Company Number: US-BAUSCH-BL-2024-011875

PATIENT
  Age: 44 Year
  Sex: Female

DRUGS (1)
  1. PYRIDOSTIGMINE BROMIDE [Suspect]
     Active Substance: PYRIDOSTIGMINE BROMIDE
     Indication: Postural orthostatic tachycardia syndrome
     Dosage: 1 TABLET THREE TIMES DAILY FOR 5 YEARS
     Route: 048
     Dates: end: 202404

REACTIONS (1)
  - Hypersensitivity [Unknown]
